FAERS Safety Report 4942677-8 (Version None)
Quarter: 2006Q1

REPORT INFORMATION
  Report Type: 
  Country: None (occurrence: None)
  Receive Date: 20060222
  Receipt Date: 20060125
  Transmission Date: 20060701
  Serious: Yes (Other)
  Sender: FDA-Public Use
  Company Number: 200610106BYL

PATIENT
  Age: 13 Month
  Sex: Male
  Weight: 10 kg

DRUGS (7)
  1. GAMIMUNE N 5% [Suspect]
     Indication: KAWASAKI'S DISEASE
     Dosage: 20 G, TOTAL DAILY, INTRAVENOUS
     Route: 042
     Dates: start: 20051230, end: 20051231
  2. ROCEPHIN [Concomitant]
  3. FROBEN [Concomitant]
  4. ASVERIN [Concomitant]
  5. MUCODYNE [Concomitant]
  6. PERIACTIN [Concomitant]
  7. HOKUNALIN [Concomitant]

REACTIONS (1)
  - HEPATIC FUNCTION ABNORMAL [None]
